FAERS Safety Report 5389473-8 (Version None)
Quarter: 2007Q3

REPORT INFORMATION
  Report Type: 
  Country: None (occurrence: None)
  Receive Date: 20070717
  Receipt Date: 20070711
  Transmission Date: 20080115
  Serious: Yes (Other)
  Sender: FDA-Public Use
  Company Number: FR-ELI_LILLY_AND_COMPANY-FR200704005406

PATIENT
  Age: 85 Year
  Sex: Female
  Weight: 59 kg

DRUGS (5)
  1. FORTEO [Suspect]
     Indication: OSTEOPOROSIS
     Dosage: 20 UG, DAILY (1/D)
     Route: 058
     Dates: start: 20060301
  2. RIVOTRIL [Concomitant]
     Indication: ANXIETY
     Dosage: 5 GTT, UNK
     Route: 048
     Dates: start: 20050101
  3. ISKEDYL_FORT [Concomitant]
     Indication: MEMORY IMPAIRMENT
     Dosage: 3 D/F, DAILY (1/D)
     Route: 048
     Dates: start: 20010101
  4. FIXICAL D3 [Concomitant]
     Indication: OSTEOPOROSIS
     Dosage: 2 D/F, DAILY (1/D)
     Route: 048
     Dates: start: 20010101
  5. UVEDOSE [Concomitant]
     Indication: HYPOVITAMINOSIS
     Dosage: 1 D/F, OTHER
     Route: 048
     Dates: start: 20070101

REACTIONS (1)
  - TRANSIENT ISCHAEMIC ATTACK [None]
